FAERS Safety Report 13893020 (Version 1)
Quarter: 2017Q3

REPORT INFORMATION
  Report Type: Spontaneous
  Country: US (occurrence: US)
  Receive Date: 20170822
  Receipt Date: 20170822
  Transmission Date: 20171127
  Serious: Yes (Other)
  Sender: FDA-Public Use
  Company Number: US-ROCHE-1164534

PATIENT
  Age: 42 Year
  Sex: Female

DRUGS (5)
  1. TAMOXIFEN [Concomitant]
     Active Substance: TAMOXIFEN
     Route: 065
     Dates: start: 20111212
  2. TAXOTERE [Concomitant]
     Active Substance: DOCETAXEL
     Route: 065
     Dates: start: 201207, end: 201209
  3. HERCEPTIN [Suspect]
     Active Substance: TRASTUZUMAB
     Dosage: LAST DOSE PRIOR TO EVENT 17/AUG/2012
     Route: 042
     Dates: start: 20120725, end: 20120907
  4. HERCEPTIN [Suspect]
     Active Substance: TRASTUZUMAB
     Indication: BREAST CANCER
     Dosage: LAST DOSE PRIOR TO EVENT: 18/MAY/2012
     Route: 042
     Dates: start: 20111212, end: 20120608
  5. EFFEXOR XR [Concomitant]
     Active Substance: VENLAFAXINE HYDROCHLORIDE
     Indication: HOT FLUSH
     Route: 048
     Dates: start: 20110929

REACTIONS (3)
  - Ejection fraction decreased [Recovered/Resolved]
  - Ejection fraction decreased [Recovered/Resolved]
  - Cardiac disorder [Unknown]

NARRATIVE: CASE EVENT DATE: 20120601
